FAERS Safety Report 15125799 (Version 2)
Quarter: 2018Q3

REPORT INFORMATION
  Report Type: Spontaneous
  Country: GB (occurrence: GB)
  Receive Date: 20180710
  Receipt Date: 20180727
  Transmission Date: 20181010
  Serious: Yes (Life-Threatening)
  Sender: FDA-Public Use
  Company Number: GB-PFIZER INC-2018273312

PATIENT
  Age: 14 Year
  Sex: Male

DRUGS (1)
  1. XANAX [Suspect]
     Active Substance: ALPRAZOLAM
     Dosage: 6 DF, UNK; DATE: 20180604 FREQ: 1?2/WEEK
     Route: 048
     Dates: start: 20180602

REACTIONS (3)
  - Alcohol interaction [Recovered/Resolved]
  - Unresponsive to stimuli [Recovered/Resolved]
  - Product use issue [Unknown]

NARRATIVE: CASE EVENT DATE: 20180602
